FAERS Safety Report 8503017-0 (Version None)
Quarter: 2012Q3

REPORT INFORMATION
  Report Type: 
  Country: None (occurrence: None)
  Receive Date: 20120711
  Receipt Date: 20120703
  Transmission Date: 20120928
  Serious: Yes (Other)
  Sender: FDA-Public Use
  Company Number: CO-ASTRAZENECA-2012SE45850

PATIENT
  Age: 18797 Day
  Sex: Female

DRUGS (1)
  1. METOPROLOL SUCCINATE [Suspect]
     Route: 048
     Dates: start: 20100629, end: 20120629

REACTIONS (2)
  - ASPHYXIA [None]
  - ARRHYTHMIA [None]
